FAERS Safety Report 5611826-0 (Version None)
Quarter: 2008Q1

REPORT INFORMATION
  Report Type: 
  Country: None (occurrence: None)
  Receive Date: 20080204
  Receipt Date: 20080125
  Transmission Date: 20080703
  Serious: Yes (Other)
  Sender: FDA-Public Use
  Company Number: US-JNJFOC-20080107275

PATIENT
  Sex: Male
  Weight: 124.74 kg

DRUGS (3)
  1. DURAGESIC-100 [Suspect]
     Route: 062
  2. DURAGESIC-100 [Suspect]
     Indication: NEURALGIA
     Route: 062
  3. ACTIQ [Concomitant]
     Indication: BREAKTHROUGH PAIN
     Route: 002

REACTIONS (6)
  - APPLICATION SITE ERYTHEMA [None]
  - DEPRESSION [None]
  - GASTROOESOPHAGEAL REFLUX DISEASE [None]
  - HYPOTHYROIDISM [None]
  - MUSCLE SPASMS [None]
  - NEURALGIA [None]
